FAERS Safety Report 10573009 (Version 1)
Quarter: 2014Q4

REPORT INFORMATION
  Report Type: Spontaneous
  Country: ES (occurrence: None)
  Receive Date: 20141106
  Receipt Date: 20141106
  Transmission Date: 20150529
  Serious: Yes (Hospitalization)
  Sender: FDA-Public Use
  Company Number: IPC201410-000574

PATIENT
  Age: 43 Year
  Sex: Male

DRUGS (3)
  1. OLMESARTAN/AMLODIPINE [Suspect]
     Active Substance: AMLODIPINE BESYLATE\OLMESARTAN MEDOXOMIL
  2. ALLOPURINOL (ALLOPURINOL) (ALLOPURINOL) [Suspect]
     Active Substance: ALLOPURINOL
  3. SIMVASTATIN (SIMVASTATIN) (SIMVASTATIN) [Suspect]
     Active Substance: SIMVASTATIN

REACTIONS (1)
  - Toxic skin eruption [None]
